FAERS Safety Report 4964372-1 (Version None)
Quarter: 2006Q2

REPORT INFORMATION
  Report Type: 
  Country: None (occurrence: None)
  Receive Date: 20060406
  Receipt Date: 20060327
  Transmission Date: 20061013
  Serious: Yes (Hospitalization, Other)
  Sender: FDA-Public Use
  Company Number: PHNU2006DE01487

PATIENT
  Age: 65 Year
  Sex: Male

DRUGS (2)
  1. LIORESAL [Suspect]
     Indication: PARAPLEGIA
     Dosage: 200 MG, ONCE/SINGLE
     Dates: start: 20060325, end: 20060325
  2. LIORESAL [Suspect]
     Dosage: 30 MG/DAY
     Route: 048

REACTIONS (5)
  - ACCIDENTAL OVERDOSE [None]
  - AGITATION [None]
  - DELIRIUM [None]
  - RESTLESSNESS [None]
  - UNRESPONSIVE TO VERBAL STIMULI [None]
